FAERS Safety Report 6958956-9 (Version None)
Quarter: 2010Q3

REPORT INFORMATION
  Report Type: 
  Country: None (occurrence: None)
  Receive Date: 20100831
  Receipt Date: 20100824
  Transmission Date: 20110219
  Serious: Yes (Other)
  Sender: FDA-Public Use
  Company Number: US-PFIZER INC-2010107045

PATIENT
  Age: 62 Year
  Sex: Female

DRUGS (4)
  1. LIPITOR [Suspect]
     Dosage: 20 MG, UNK
  2. VERAPAMIL HCL [Suspect]
     Dosage: 240 MG, UNK
  3. HYDROCHLOROTHIAZIDE [Suspect]
     Dosage: 25 MG, UNK
  4. ESTRADERM [Suspect]
     Dosage: 0.005 MG, UNK

REACTIONS (2)
  - ARTHRALGIA [None]
  - PETECHIAE [None]
